FAERS Safety Report 24788361 (Version 1)
Quarter: 2024Q4

REPORT INFORMATION
  Report Type: Spontaneous
  Country: US (occurrence: None)
  Receive Date: 20241229
  Receipt Date: 20241229
  Transmission Date: 20250114
  Serious: Yes (Hospitalization)
  Sender: Public
  Company Number: None

PATIENT
  Sex: Male
  Weight: 15.5 kg

DRUGS (2)
  1. CYCLOPHOSPHAMIDE [Suspect]
     Active Substance: CYCLOPHOSPHAMIDE
     Indication: Chemotherapy
     Dates: start: 20241214, end: 20241218
  2. TOPOTECAN [Suspect]
     Active Substance: TOPOTECAN HYDROCHLORIDE
     Dates: start: 20241214, end: 20241218

REACTIONS (11)
  - Pleural effusion [None]
  - Condition aggravated [None]
  - Haemothorax [None]
  - Anaemia [None]
  - Red blood cell transfusion [None]
  - Hypotension [None]
  - Heart rate increased [None]
  - Tumour haemorrhage [None]
  - Tumour necrosis [None]
  - Haemoperitoneum [None]
  - Haemorrhagic ascites [None]

NARRATIVE: CASE EVENT DATE: 20241220
